FAERS Safety Report 6676389-X (Version None)
Quarter: 2010Q2

REPORT INFORMATION
  Report Type: 
  Country: None (occurrence: None)
  Receive Date: 20100412
  Receipt Date: 20100329
  Transmission Date: 20101027
  Serious: Yes (Other)
  Sender: FDA-Public Use
  Company Number: PHHY2010CH19800

PATIENT
  Age: 60 Year
  Sex: Male

DRUGS (1)
  1. ZOMETA [Suspect]
     Indication: METASTASES TO BONE
     Dosage: 4 MG, QMO
     Route: 042

REACTIONS (19)
  - ACTINOMYCOSIS [None]
  - BONE DISORDER [None]
  - DEBRIDEMENT [None]
  - IMPAIRED HEALING [None]
  - INFECTION [None]
  - LIGAMENT DISORDER [None]
  - METASTASES TO BONE [None]
  - OEDEMA MOUTH [None]
  - OPEN WOUND [None]
  - OSTEOMYELITIS [None]
  - OSTEONECROSIS [None]
  - OSTEOSCLEROSIS [None]
  - PAIN IN JAW [None]
  - SEQUESTRECTOMY [None]
  - SOFT TISSUE INFLAMMATION [None]
  - TOOTH EXTRACTION [None]
  - TRISMUS [None]
  - WOUND CLOSURE [None]
  - WOUND DRAINAGE [None]
